FAERS Safety Report 14688610 (Version 1)
Quarter: 2018Q1

REPORT INFORMATION
  Report Type: Spontaneous
  Country: US (occurrence: US)
  Receive Date: 20180328
  Receipt Date: 20180328
  Transmission Date: 20180509
  Serious: Yes (Life-Threatening, Hospitalization)
  Sender: FDA-Public Use
  Company Number: US-LPDUSPRD-20180390

PATIENT
  Age: 56 Year
  Sex: Female
  Weight: 132 kg

DRUGS (3)
  1. MIRCERA [Suspect]
     Active Substance: METHOXY POLYETHYLENE GLYCOL-EPOETIN BETA
     Dosage: 150 MCG, 1 IN 2 WK
     Route: 040
     Dates: start: 20180307, end: 20180307
  2. MIDODRINE [Concomitant]
     Active Substance: MIDODRINE
     Dosage: 20 MG
     Route: 048
  3. VENOFER [Suspect]
     Active Substance: IRON SUCROSE
     Dosage: 100 MG
     Route: 040
     Dates: start: 20180226, end: 20180307

REACTIONS (3)
  - Nausea [Unknown]
  - Unresponsive to stimuli [Unknown]
  - Abdominal discomfort [Unknown]

NARRATIVE: CASE EVENT DATE: 20180307
